FAERS Safety Report 10526919 (Version 3)
Quarter: 2015Q1

REPORT INFORMATION
  Report Type: Spontaneous
  Country: IT (occurrence: IT)
  Receive Date: 20141020
  Receipt Date: 20150213
  Transmission Date: 20150720
  Serious: Yes (Hospitalization)
  Sender: FDA-Public Use
  Company Number: IT-ROCHE-1475925

PATIENT
  Age: 42 Year
  Sex: Female

DRUGS (2)
  1. RIVOTRIL [Suspect]
     Active Substance: CLONAZEPAM
     Indication: DRUG ABUSE
     Dosage: 2,5MG/ML ORAL DROPS , SOLUTION^
     Route: 048
     Dates: start: 20141014, end: 20141014
  2. DEPAKIN [Suspect]
     Active Substance: VALPROATE SODIUM
     Indication: DRUG ABUSE
     Dosage: CHRONO 500 MG EXTENDED-RELEASE TABLETS^
     Route: 048
     Dates: start: 20141014, end: 20141014

REACTIONS (3)
  - Drug abuse [Unknown]
  - Bradyphrenia [Recovering/Resolving]
  - Bradykinesia [Recovering/Resolving]

NARRATIVE: CASE EVENT DATE: 20141014
